FAERS Safety Report 10085885 (Version 1)
Quarter: 2014Q2

REPORT INFORMATION
  Report Type: Other
  Country: GB (occurrence: GB)
  Receive Date: 20140418
  Receipt Date: 20140418
  Transmission Date: 20141212
  Serious: Yes (Hospitalization)
  Sender: FDA-Public Use
  Company Number: GB-PERRIGO-14GB003974

PATIENT
  Age: 71 Year
  Sex: Female

DRUGS (4)
  1. NAPROXEN 250MG 16028/0144 [Suspect]
     Indication: OSTEOARTHRITIS
     Dosage: UNK
     Route: 048
     Dates: end: 20140301
  2. NAPROXEN 250MG 16028/0144 [Suspect]
     Indication: RHEUMATOID ARTHRITIS
  3. CALCICHEW D3 [Concomitant]
     Indication: PRODUCT USED FOR UNKNOWN INDICATION
     Route: 048
  4. OMEPRAZOLE [Concomitant]
     Indication: GASTRITIS
     Dosage: 20 MG, UNK
     Route: 065

REACTIONS (1)
  - Haemoglobin decreased [Not Recovered/Not Resolved]
